FAERS Safety Report 15989294 (Version 7)
Quarter: 2019Q2

REPORT INFORMATION
  Report Type: Spontaneous
  Country: US (occurrence: US)
  Receive Date: 20190221
  Receipt Date: 20190628
  Transmission Date: 20190711
  Serious: Yes (Hospitalization, Other)
  Sender: FDA-Public Use
  Company Number: US-AMGEN-USASP2019025046

PATIENT
  Age: 67 Year
  Sex: Female
  Weight: 72.56 kg

DRUGS (16)
  1. PROLIA [Suspect]
     Active Substance: DENOSUMAB
     Indication: OSTEOPENIA
     Dosage: 60 MG, Q6MO
     Route: 065
     Dates: start: 201601, end: 201901
  2. CALCIUM [Concomitant]
     Active Substance: CALCIUM
     Dosage: UNK UNK, 2 TIMES/WK
  3. FERROUS SULFATE. [Concomitant]
     Active Substance: FERROUS SULFATE
     Dosage: 375 MILLIGRAM, BID
  4. PROLIA [Suspect]
     Active Substance: DENOSUMAB
     Indication: BONE DENSITY ABNORMAL
  5. PROLIA [Suspect]
     Active Substance: DENOSUMAB
     Indication: OSTEOPOROSIS POSTMENOPAUSAL
  6. VIT D [Concomitant]
     Active Substance: VITAMIN D NOS
     Dosage: 400 UNK, BID
  7. VERAPAMIL [Concomitant]
     Active Substance: VERAPAMIL HYDROCHLORIDE
     Dosage: 80 MILLIGRAM, QID
  8. MULTIVITAMINS [VITAMINS NOS] [Concomitant]
     Active Substance: VITAMINS
     Dosage: ONCE OR TWICE WEEKLY
  9. FOLIC ACID. [Concomitant]
     Active Substance: FOLIC ACID
     Dosage: 1 MILLIGRAM, QD
  10. TAMOXIFEN CITRATE. [Concomitant]
     Active Substance: TAMOXIFEN CITRATE
     Dosage: 20 MILLIGRAM, QD
     Dates: start: 201901
  11. ANASTROZOL [Concomitant]
     Active Substance: ANASTROZOLE
     Dosage: 1 MILLIGRAM, QD
     Dates: start: 201601
  12. VITAMIN B12 [Concomitant]
     Active Substance: CYANOCOBALAMIN
     Dosage: UNK, QWK
     Route: 060
  13. VIT D [Concomitant]
     Active Substance: VITAMIN D NOS
     Dosage: UNK, QWK
  14. PROLIA [Suspect]
     Active Substance: DENOSUMAB
     Indication: BONE DISORDER
  15. TAMOXIFEN [Concomitant]
     Active Substance: TAMOXIFEN
     Dosage: UNK
  16. CALCIUM [Concomitant]
     Active Substance: CALCIUM
     Dosage: 600 UNK, BID
     Route: 048

REACTIONS (21)
  - Abscess rupture [Unknown]
  - Cystitis [Unknown]
  - Pain in jaw [Unknown]
  - Depression [Unknown]
  - Iron deficiency anaemia [Unknown]
  - Weight decreased [Recovered/Resolved]
  - Aplastic anaemia [Unknown]
  - Device related infection [Unknown]
  - Cellulitis [Recovered/Resolved]
  - Tooth abscess [Unknown]
  - Vitamin C deficiency [Unknown]
  - Rash [Recovered/Resolved]
  - Dental caries [Not Recovered/Not Resolved]
  - Tooth fracture [Unknown]
  - Vitamin D deficiency [Unknown]
  - Sepsis [Unknown]
  - Urinary tract infection [Recovered/Resolved]
  - Tooth loss [Unknown]
  - Loose tooth [Unknown]
  - Lymphoedema [Recovered/Resolved]
  - Hypocalcaemia [Unknown]

NARRATIVE: CASE EVENT DATE: 2016
